FAERS Safety Report 7794873-2 (Version None)
Quarter: 2011Q4

REPORT INFORMATION
  Report Type: 
  Country: None (occurrence: None)
  Receive Date: 20111004
  Receipt Date: 20110923
  Transmission Date: 20120403
  Serious: Yes (Other)
  Sender: FDA-Public Use
  Company Number: PHHY2011BR85038

PATIENT
  Age: 54 Year
  Sex: Male

DRUGS (1)
  1. TRILEPTAL [Suspect]
     Indication: DEPRESSION
     Dosage: 1 TABLET IN THE MORNING AND 1 TABLET AT NIGHT

REACTIONS (7)
  - BIPOLAR DISORDER [None]
  - DECREASED APPETITE [None]
  - DEPRESSION [None]
  - ASTHENIA [None]
  - MOOD SWINGS [None]
  - APATHY [None]
  - MALAISE [None]
